FAERS Safety Report 11425122 (Version 2)
Quarter: 2015Q3

REPORT INFORMATION
  Report Type: Spontaneous
  Country: US (occurrence: US)
  Receive Date: 20150821
  Receipt Date: 20150903
  Transmission Date: 20151125
  Serious: No
  Sender: FDA-Public Use
  Company Number: US-ELI_LILLY_AND_COMPANY-US201103005032

PATIENT
  Age: 37 Year
  Sex: Female
  Weight: 110.9 kg

DRUGS (8)
  1. HUMALOG [Suspect]
     Active Substance: INSULIN LISPRO
     Dosage: 14 U, UNKNOWN
     Dates: start: 20110118
  2. TYLENOL [Concomitant]
     Active Substance: ACETAMINOPHEN
     Dosage: UNK
  3. HUMULIN N [Suspect]
     Active Substance: INSULIN HUMAN
     Dosage: 14 U, QID
     Route: 058
     Dates: start: 20110118
  4. HUMULIN N [Suspect]
     Active Substance: INSULIN HUMAN
     Dosage: 44 U, EACH EVENING
     Route: 058
     Dates: start: 20110118
  5. NOVOLOG [Concomitant]
     Active Substance: INSULIN ASPART
     Dosage: 26 U, EACH MORNING
     Dates: start: 20110117, end: 20110308
  6. VISTARIL [Concomitant]
     Active Substance: HYDROXYZINE PAMOATE
     Dosage: UNK
  7. HUMULIN N [Suspect]
     Active Substance: INSULIN HUMAN
     Dosage: 30 U, EACH MORNING
     Route: 058
     Dates: start: 20110118
  8. NOVOLOG [Concomitant]
     Active Substance: INSULIN ASPART
     Dosage: 28 U, EACH EVENING

REACTIONS (3)
  - Injection site urticaria [Not Recovered/Not Resolved]
  - Pruritus [Not Recovered/Not Resolved]
  - Exposure during pregnancy [Not Recovered/Not Resolved]

NARRATIVE: CASE EVENT DATE: 20110118
